FAERS Safety Report 24152055 (Version 1)
Quarter: 2024Q3

REPORT INFORMATION
  Report Type: Spontaneous
  Country: US (occurrence: US)
  Receive Date: 20240730
  Receipt Date: 20240730
  Transmission Date: 20241017
  Serious: No
  Sender: SAREPTA THERAPEUTICS
  Company Number: US-SAREPTA THERAPEUTICS INC.-SRP2024-004522

PATIENT
  Sex: Male

DRUGS (3)
  1. AMONDYS 45 [Suspect]
     Active Substance: CASIMERSEN
     Indication: Duchenne muscular dystrophy
     Dosage: 1700 MILLIGRAM, WEEKLY
     Route: 042
     Dates: start: 20220228, end: 20240314
  2. AMONDYS 45 [Suspect]
     Active Substance: CASIMERSEN
     Dosage: 1700 MILLIGRAM, WEEKLY
     Route: 042
     Dates: start: 202403
  3. EMFLAZA [Concomitant]
     Active Substance: DEFLAZACORT
     Indication: Product used for unknown indication

REACTIONS (3)
  - Respiratory tract congestion [Recovered/Resolved]
  - Cough [Recovered/Resolved]
  - Exposure to SARS-CoV-2 [Unknown]
